FAERS Safety Report 16669970 (Version 2)
Quarter: 2019Q4

REPORT INFORMATION
  Report Type: Spontaneous
  Country: US (occurrence: US)
  Receive Date: 20190805
  Receipt Date: 20191029
  Transmission Date: 20200122
  Serious: Yes (Hospitalization)
  Sender: FDA-Public Use
  Company Number: US-ALLERGAN-1931627US

PATIENT
  Sex: Male
  Weight: 73 kg

DRUGS (9)
  1. ADVIL [Concomitant]
     Active Substance: IBUPROFEN
     Indication: PAIN
     Dosage: 200 MG, PRN
  2. CLONAZEPAM. [Concomitant]
     Active Substance: CLONAZEPAM
     Indication: ANXIETY
     Dosage: 2 MG, QD
  3. CITALOPRAM [Concomitant]
     Active Substance: CITALOPRAM HYDROBROMIDE
     Indication: DEPRESSION
     Dosage: 40 MG, QD
     Dates: start: 2010
  4. VIBERZI [Suspect]
     Active Substance: ELUXADOLINE
     Indication: IRRITABLE BOWEL SYNDROME
     Dosage: 37.2 MG, QD
     Route: 048
     Dates: end: 201908
  5. LISINOPRIL. [Concomitant]
     Active Substance: LISINOPRIL
     Indication: BLOOD PRESSURE MEASUREMENT
     Dosage: 2 AND A HALF MG, QD
  6. METHOCARBAMOL. [Concomitant]
     Active Substance: METHOCARBAMOL
     Indication: SCOLIOSIS
     Dosage: 750 MG, PRN
  7. METHOCARBAMOL. [Concomitant]
     Active Substance: METHOCARBAMOL
     Indication: INTERVERTEBRAL DISC DEGENERATION
  8. METHOCARBAMOL. [Concomitant]
     Active Substance: METHOCARBAMOL
     Indication: SPINAL OSTEOARTHRITIS
  9. BENADRYL [Concomitant]
     Active Substance: DIPHENHYDRAMINE HYDROCHLORIDE
     Indication: SLEEP DISORDER
     Dosage: 25 MG, PRN

REACTIONS (9)
  - Nephrolithiasis [Recovered/Resolved]
  - Wrong technique in product usage process [Unknown]
  - Vomiting [Unknown]
  - Renal pain [Recovered/Resolved]
  - Kidney infection [Recovered/Resolved]
  - Contraindicated product administered [Unknown]
  - Malaise [Recovered/Resolved]
  - Weight decreased [Not Recovered/Not Resolved]
  - Flank pain [Unknown]

NARRATIVE: CASE EVENT DATE: 201907
